FAERS Safety Report 13462522 (Version 2)
Quarter: 2017Q2

REPORT INFORMATION
  Report Type: Spontaneous
  Country: US (occurrence: US)
  Receive Date: 20170420
  Receipt Date: 20170613
  Transmission Date: 20170830
  Serious: Yes (Other)
  Sender: FDA-Public Use
  Company Number: US-BAYER-2017-075648

PATIENT
  Age: 34 Year
  Sex: Female
  Weight: 64.4 kg

DRUGS (1)
  1. MIRENA [Suspect]
     Active Substance: LEVONORGESTREL
     Indication: CONTRACEPTION
     Dosage: 20 MCG/24HR, CONT
     Route: 015
     Dates: start: 20170310, end: 20170329

REACTIONS (4)
  - Abdominal pain [Recovered/Resolved]
  - Uterine perforation [Recovered/Resolved]
  - Procedural pain [None]
  - Device issue [Recovered/Resolved]

NARRATIVE: CASE EVENT DATE: 20170310
